FAERS Safety Report 12627911 (Version 1)
Quarter: 2016Q3

REPORT INFORMATION
  Report Type: Spontaneous
  Country: GB (occurrence: GB)
  Receive Date: 20160807
  Receipt Date: 20160807
  Transmission Date: 20161109
  Serious: Yes (Other)
  Sender: FDA-Public Use
  Company Number: GB-TEVA-681063ACC

PATIENT
  Age: 65 Year
  Sex: Male
  Weight: 96 kg

DRUGS (3)
  1. INDOMETACIN [Concomitant]
     Active Substance: INDOMETHACIN
     Dates: start: 20160503, end: 20160531
  2. SIMVASTATIN. [Suspect]
     Active Substance: SIMVASTATIN
     Dates: start: 20150330
  3. BEZAFIBRATE [Concomitant]
     Active Substance: BEZAFIBRATE
     Dates: start: 20150330

REACTIONS (1)
  - Tendonitis [Recovered/Resolved]

NARRATIVE: CASE EVENT DATE: 20160715
